FAERS Safety Report 7405002-9 (Version None)
Quarter: 2011Q2

REPORT INFORMATION
  Report Type: 
  Country: None (occurrence: None)
  Receive Date: 20110411
  Receipt Date: 20110214
  Transmission Date: 20111010
  Serious: Yes (Other)
  Sender: FDA-Public Use
  Company Number: US-BAYER-201014324NA

PATIENT
  Age: 23 Year
  Sex: Female
  Weight: 78.005 kg

DRUGS (3)
  1. YAZ [Suspect]
     Indication: CONTRACEPTION
     Route: 048
     Dates: start: 20070801, end: 20090425
  2. CEFTIN [Concomitant]
     Indication: ACUTE SINUSITIS
     Dosage: 250 MG, BID
     Route: 048
  3. YASMIN [Suspect]
     Indication: CONTRACEPTION
     Route: 048
     Dates: start: 20070101, end: 20090615

REACTIONS (3)
  - CHOLELITHIASIS [None]
  - BILIARY COLIC [None]
  - ABDOMINAL PAIN UPPER [None]
